FAERS Safety Report 4533849-5 (Version None)
Quarter: 2004Q4

REPORT INFORMATION
  Report Type: 
  Country: None (occurrence: None)
  Receive Date: 20041221
  Receipt Date: 20041210
  Transmission Date: 20050328
  Serious: Yes (Other)
  Sender: FDA-Public Use
  Company Number: DE-MERCK-0412DEU00131

PATIENT

DRUGS (2)
  1. PRIMAXIN [Suspect]
     Route: 042
     Dates: start: 20041201
  2. [THERAPY UNSPECIFIED] [Concomitant]
     Route: 065

REACTIONS (1)
  - COMA HEPATIC [None]
